FAERS Safety Report 4293103-6 (Version None)
Quarter: 2004Q1

REPORT INFORMATION
  Report Type: 
  Country: None (occurrence: None)
  Receive Date: 20040212
  Receipt Date: 20021231
  Transmission Date: 20041129
  Serious: No
  Sender: FDA-Public Use
  Company Number: US-GLAXOSMITHKLINE-A0390960A

PATIENT
  Age: 34 Year
  Sex: Female
  Weight: 81.8 kg

DRUGS (2)
  1. PAXIL [Suspect]
     Indication: PANIC ATTACK
     Route: 048
     Dates: start: 20000701, end: 20010901
  2. ATIVAN [Concomitant]
     Dates: start: 20020101, end: 20030101

REACTIONS (3)
  - DRUG WITHDRAWAL SYNDROME [None]
  - HYPOAESTHESIA [None]
  - HYPOAESTHESIA ORAL [None]
